FAERS Safety Report 19836667 (Version 1)
Quarter: 2021Q3

REPORT INFORMATION
  Report Type: Spontaneous
  Country: GB (occurrence: GB)
  Receive Date: 20210916
  Receipt Date: 20210916
  Transmission Date: 20211014
  Serious: Yes (Other)
  Sender: FDA-Public Use
  Company Number: GB-AUROBINDO-AUR-APL-2021-038900

PATIENT
  Age: 86 Year
  Sex: Male

DRUGS (1)
  1. PAROXETINE. [Suspect]
     Active Substance: PAROXETINE
     Indication: DEPRESSION
     Dosage: 45 MILLIGRAM, ONCE A DAY(45 MG, QD)
     Route: 065
     Dates: start: 1999

REACTIONS (3)
  - Hypoglycaemia [Recovered/Resolved]
  - Urinary tract infection [Unknown]
  - Pulmonary embolism [Unknown]
